FAERS Safety Report 5063702-2 (Version None)
Quarter: 2006Q3

REPORT INFORMATION
  Report Type: 
  Country: None (occurrence: None)
  Receive Date: 20060724
  Receipt Date: 20060703
  Transmission Date: 20061208
  Serious: Yes (Death, Hospitalization, Other)
  Sender: FDA-Public Use
  Company Number: 2006RR-02957

PATIENT
  Age: 34 Year
  Sex: Male

DRUGS (12)
  1. SIMVASTATIN [Suspect]
     Indication: PROPHYLAXIS AGAINST TRANSPLANT REJECTION
     Dosage: 20 MG, QD, ORAL
     Route: 048
  2. FUROSEMIDE [Concomitant]
  3. DIGOXIN [Concomitant]
  4. ACENOCOUMAROL [Concomitant]
  5. SPIRONOLACTONE [Concomitant]
  6. ISOPROTERENOL [Concomitant]
  7. ADRENALINE [Concomitant]
  8. NORADRENALINE [Concomitant]
  9. METHYLPREDNISOLONE [Concomitant]
  10. ORTHOCLONE OKT3 [Concomitant]
  11. MYCOPHENOLATE [Concomitant]
  12. GANCICLOVIR [Concomitant]

REACTIONS (3)
  - RENAL FAILURE [None]
  - RESPIRATORY FAILURE [None]
  - RHABDOMYOLYSIS [None]
